FAERS Safety Report 11254392 (Version 1)
Quarter: 2015Q3

REPORT INFORMATION
  Report Type: Spontaneous
  Country: US (occurrence: None)
  Receive Date: 20150708
  Receipt Date: 20150708
  Transmission Date: 20151125
  Serious: No
  Sender: FDA-Public Use
  Company Number: None

PATIENT
  Age: 74 Year
  Sex: Female
  Weight: 54.43 kg

DRUGS (6)
  1. LORAZAPAM [Concomitant]
     Active Substance: LORAZEPAM
  2. ADCIRCA [Concomitant]
     Active Substance: TADALAFIL
  3. LEVOTHYROXINE. [Concomitant]
     Active Substance: LEVOTHYROXINE
  4. GABAPENTIN. [Suspect]
     Active Substance: GABAPENTIN
     Indication: NEUROPATHY PERIPHERAL
     Dosage: 1 A.M. - 2 NOON 2-PM 3X DAY BY MOUTH
     Route: 048
     Dates: start: 20141222
  5. GABAPENTIN. [Suspect]
     Active Substance: GABAPENTIN
     Indication: LUNG NEOPLASM MALIGNANT
     Dosage: 1 A.M. - 2 NOON 2-PM 3X DAY BY MOUTH
     Route: 048
     Dates: start: 20141222
  6. OXYCODONE [Concomitant]
     Active Substance: OXYCODONE

REACTIONS (2)
  - Visual impairment [None]
  - Lacrimation increased [None]

NARRATIVE: CASE EVENT DATE: 20141222
